FAERS Safety Report 11023922 (Version 2)
Quarter: 2015Q2

REPORT INFORMATION
  Report Type: Spontaneous
  Country: US (occurrence: US)
  Receive Date: 20150413
  Receipt Date: 20150525
  Transmission Date: 20150821
  Serious: Yes (Hospitalization, Other)
  Sender: FDA-Public Use
  Company Number: US-JNJFOC-20110812334

PATIENT
  Age: 50 Year
  Sex: Male

DRUGS (1)
  1. LEVAQUIN [Suspect]
     Active Substance: LEVOFLOXACIN
     Indication: BACTERIAL INFECTION
     Route: 048

REACTIONS (2)
  - Tendon rupture [Not Recovered/Not Resolved]
  - Tenosynovitis [Unknown]

NARRATIVE: CASE EVENT DATE: 20100616
